FAERS Safety Report 5712346-5 (Version None)
Quarter: 2008Q2

REPORT INFORMATION
  Report Type: 
  Country: None (occurrence: None)
  Receive Date: 20080422
  Receipt Date: 20080422
  Transmission Date: 20081010
  Serious: Yes (Life-Threatening, Hospitalization, Disabling, Other)
  Sender: FDA-Public Use
  Company Number: None

PATIENT
  Age: 31 Year
  Sex: Female
  Weight: 90.7194 kg

DRUGS (2)
  1. HEPARIN LOCK-FLUSH [Suspect]
     Indication: INTRAVENOUS CATHETER MANAGEMENT
     Dosage: 100 UNITS 1 A DAY IV BOLUS
     Route: 040
  2. SODIUM CHLORIDE INJ [Suspect]
     Indication: INTRAVENOUS CATHETER MANAGEMENT
     Dosage: 10ML 1 A DAY IV BOLUS
     Route: 040

REACTIONS (9)
  - ANGIOPLASTY [None]
  - BLOOD DISORDER [None]
  - CATHETER SEPSIS [None]
  - CHEST PAIN [None]
  - INFECTION [None]
  - MALAISE [None]
  - PHARMACEUTICAL PRODUCT COMPLAINT [None]
  - SUPERIOR VENA CAVAL OCCLUSION [None]
  - THROMBOSIS [None]
